FAERS Safety Report 17803499 (Version 2)
Quarter: 2020Q2

REPORT INFORMATION
  Report Type: Report from Study
  Country: CA (occurrence: CA)
  Receive Date: 20200519
  Receipt Date: 20200529
  Transmission Date: 20200714
  Serious: Yes (Death, Hospitalization, Disabling, Other)
  Sender: FDA-Public Use
  Company Number: NVSC2020CA127813

PATIENT
  Age: 73 Year
  Sex: Female
  Weight: 58 kg

DRUGS (6)
  1. HYDROCORTISONE. [Concomitant]
     Active Substance: HYDROCORTISONE
     Indication: PRODUCT USED FOR UNKNOWN INDICATION
     Dosage: UNK
     Route: 065
  2. DABRAFENIB [Suspect]
     Active Substance: DABRAFENIB
     Indication: ADENOCARCINOMA METASTATIC
     Dosage: 150 MG, BID
     Route: 048
     Dates: start: 20200403, end: 20200502
  3. TRAMETINIB [Suspect]
     Active Substance: TRAMETINIB
     Indication: ADENOCARCINOMA METASTATIC
     Dosage: 2 MG, QD
     Route: 065
     Dates: start: 20200403, end: 20200502
  4. DOXYCYCLINE. [Concomitant]
     Active Substance: DOXYCYCLINE
     Indication: PRODUCT USED FOR UNKNOWN INDICATION
     Dosage: UNK
     Route: 065
  5. TINZAPARIN [Concomitant]
     Active Substance: TINZAPARIN
     Indication: PRODUCT USED FOR UNKNOWN INDICATION
     Dosage: UNK
     Route: 065
  6. PANITUMUMAB [Concomitant]
     Active Substance: PANITUMUMAB
     Indication: PRODUCT USED FOR UNKNOWN INDICATION
     Dosage: UNK
     Route: 065

REACTIONS (12)
  - Metastases to abdominal cavity [Unknown]
  - Adenocarcinoma [Fatal]
  - Delirium [Not Recovered/Not Resolved]
  - Fracture [Unknown]
  - Fall [Unknown]
  - Functional gastrointestinal disorder [Unknown]
  - Pyrexia [Recovered/Resolved]
  - Vomiting [Unknown]
  - Malignant neoplasm progression [Fatal]
  - Sciatica [Unknown]
  - Metastases to lung [Not Recovered/Not Resolved]
  - Nausea [Unknown]

NARRATIVE: CASE EVENT DATE: 20200416
